FAERS Safety Report 4516813-1 (Version None)
Quarter: 2004Q4

REPORT INFORMATION
  Report Type: 
  Country: None (occurrence: None)
  Receive Date: 20041202
  Receipt Date: 20041022
  Transmission Date: 20050328
  Serious: Yes (Disabling, Other)
  Sender: FDA-Public Use
  Company Number: US-GLAXOSMITHKLINE-A0530913A

PATIENT
  Age: 31 Year
  Sex: Female
  Weight: 52.3 kg

DRUGS (5)
  1. PAXIL [Suspect]
     Indication: POSTURAL ORTHOSTATIC TACHYCARDIA SYNDROME
     Dosage: 20MG PER DAY
     Route: 048
     Dates: start: 19990101
  2. STRATTERA [Concomitant]
     Dosage: 40MG PER DAY
     Route: 048
     Dates: start: 20030101
  3. FENTANYL [Concomitant]
     Route: 062
  4. LIPITOR [Concomitant]
     Indication: BLOOD CHOLESTEROL INCREASED
     Dosage: 20MG PER DAY
     Route: 048
     Dates: start: 20040101
  5. CORGARD [Concomitant]
     Indication: POSTURAL ORTHOSTATIC TACHYCARDIA SYNDROME

REACTIONS (3)
  - ABNORMAL DREAMS [None]
  - FEELING ABNORMAL [None]
  - NAUSEA [None]
